FAERS Safety Report 5629675-6 (Version None)
Quarter: 2008Q1

REPORT INFORMATION
  Report Type: 
  Country: None (occurrence: None)
  Receive Date: 20080218
  Receipt Date: 20080211
  Transmission Date: 20080703
  Serious: Yes (Hospitalization)
  Sender: FDA-Public Use
  Company Number: B0507562A

PATIENT
  Age: 40 Year
  Sex: Male

DRUGS (5)
  1. FORTAM [Suspect]
     Indication: INFECTION
     Dosage: 3G PER DAY
     Route: 042
     Dates: start: 20071213
  2. AUGMENTIN '125' [Suspect]
     Indication: INFECTION
     Dosage: 3G PER DAY
     Route: 042
     Dates: start: 20071213
  3. NORFLOXACIN [Suspect]
     Indication: INFECTION
     Dosage: 400MG PER DAY
     Route: 048
     Dates: start: 20071214
  4. PROGRAF [Suspect]
     Indication: LIVER TRANSPLANT
     Dosage: 6MG PER DAY
     Route: 048
     Dates: start: 20071214
  5. ADOLONTA [Suspect]
     Indication: PAIN
     Dosage: 30MG PER DAY
     Route: 042
     Dates: start: 20071214

REACTIONS (2)
  - CONVULSION [None]
  - HALLUCINATION [None]
